FAERS Safety Report 15946099 (Version 1)
Quarter: 2019Q1

REPORT INFORMATION
  Report Type: Spontaneous
  Country: PE (occurrence: PE)
  Receive Date: 20190212
  Receipt Date: 20190212
  Transmission Date: 20190417
  Serious: Yes (Other)
  Sender: FDA-Public Use
  Company Number: PE-ROCHE-2262878

PATIENT
  Age: 77 Year
  Sex: Female

DRUGS (3)
  1. AVASTIN [Suspect]
     Active Substance: BEVACIZUMAB
     Indication: CERVIX CARCINOMA
     Route: 065
     Dates: start: 20170218, end: 20180910
  2. CISPLATIN. [Concomitant]
     Active Substance: CISPLATIN
  3. AVASTIN [Suspect]
     Active Substance: BEVACIZUMAB
     Route: 065
     Dates: start: 20180611

REACTIONS (6)
  - Myopathy [Unknown]
  - Neutropenia [Unknown]
  - Pain [Unknown]
  - Polyneuropathy [Unknown]
  - Metastases to bone [Unknown]
  - Osteoporosis [Unknown]

NARRATIVE: CASE EVENT DATE: 20171113
